FAERS Safety Report 8156053-0 (Version None)
Quarter: 2012Q1

REPORT INFORMATION
  Report Type: 
  Country: None (occurrence: None)
  Receive Date: 20120222
  Receipt Date: 20120209
  Transmission Date: 20120608
  Serious: Yes (Other)
  Sender: FDA-Public Use
  Company Number: US-ELI_LILLY_AND_COMPANY-US201201003720

PATIENT
  Sex: Male
  Weight: 68.934 kg

DRUGS (5)
  1. FOLIC ACID [Concomitant]
     Dosage: 1 MG, QD
     Route: 048
  2. VITAMIN B-12 [Concomitant]
     Dosage: 1000 MG, UNKNOWN
     Route: 058
  3. ALIMTA [Suspect]
     Dosage: 800 MG, EVERY 21 DAYS
     Route: 042
  4. ALIMTA [Suspect]
     Dosage: 800 MG, EVERY 21 DAYS
     Route: 042
  5. ALIMTA [Suspect]
     Indication: NON-SMALL CELL LUNG CANCER
     Dosage: 800 MG, EVERY 21 DAYS
     Route: 042
     Dates: end: 20120201

REACTIONS (5)
  - NAUSEA [None]
  - PLEURAL EFFUSION [None]
  - COLD SWEAT [None]
  - HYPOTENSION [None]
  - ABDOMINAL PAIN [None]
